FAERS Safety Report 6760010-6 (Version None)
Quarter: 2010Q2

REPORT INFORMATION
  Report Type: 
  Country: None (occurrence: None)
  Receive Date: 20100608
  Receipt Date: 20100528
  Transmission Date: 20101027
  Serious: Yes (Other)
  Sender: FDA-Public Use
  Company Number: RU-BAYER-201026597GPV

PATIENT
  Age: 53 Year
  Sex: Female
  Weight: 88 kg

DRUGS (1)
  1. NAZOL ADVANCE [Suspect]
     Indication: RHINITIS
     Route: 045
     Dates: start: 20100514, end: 20100514

REACTIONS (5)
  - ANGIOEDEMA [None]
  - APNOEA [None]
  - EYE PAIN [None]
  - EYELID OEDEMA [None]
  - FACE OEDEMA [None]
